FAERS Safety Report 12754623 (Version 1)
Quarter: 2016Q3

REPORT INFORMATION
  Report Type: Spontaneous
  Country: US (occurrence: US)
  Receive Date: 20160915
  Receipt Date: 20160915
  Transmission Date: 20161109
  Serious: No
  Sender: FDA-Public Use
  Company Number: US-ASTELLAS-2016US022032

PATIENT
  Age: 86 Year
  Sex: Male

DRUGS (4)
  1. XTANDI [Suspect]
     Active Substance: ENZALUTAMIDE
     Indication: PROSTATE CANCER METASTATIC
     Route: 048
     Dates: start: 20160210, end: 20160606
  2. XTANDI [Interacting]
     Active Substance: ENZALUTAMIDE
     Indication: METASTASES TO RECTUM
  3. XTANDI [Interacting]
     Active Substance: ENZALUTAMIDE
     Indication: METASTASES TO BLADDER
  4. FENTANYL. [Interacting]
     Active Substance: FENTANYL
     Indication: PAIN
     Dosage: UNK, UNKNOWN FREQ.
     Route: 003

REACTIONS (3)
  - Treatment noncompliance [Unknown]
  - Bowel movement irregularity [Unknown]
  - Drug interaction [Unknown]

NARRATIVE: CASE EVENT DATE: 20160517
